FAERS Safety Report 18963435 (Version 1)
Quarter: 2021Q1

REPORT INFORMATION
  Report Type: Spontaneous
  Country: US (occurrence: US)
  Receive Date: 20210303
  Receipt Date: 20210303
  Transmission Date: 20210420
  Serious: Yes (Other)
  Sender: FDA-Public Use
  Company Number: None

PATIENT
  Age: 71 Year
  Sex: Male
  Weight: 99 kg

DRUGS (7)
  1. TIMILOL [Concomitant]
  2. LISINOPRIL. [Concomitant]
     Active Substance: LISINOPRIL
  3. ONE?A?DAY NOS [Concomitant]
     Active Substance: MINERALS\VITAMINS
  4. LOVASTATIN. [Concomitant]
     Active Substance: LOVASTATIN
  5. LATANOPROST. [Concomitant]
     Active Substance: LATANOPROST
  6. TRELEGY ELLIPTA [Concomitant]
     Active Substance: FLUTICASONE FUROATE\UMECLIDINIUM BROMIDE\VILANTEROL TRIFENATATE
  7. DILTIAZEM. [Suspect]
     Active Substance: DILTIAZEM
     Indication: HEART RATE INCREASED
     Dosage: ?          QUANTITY:240 CAPSULE(S);?
     Route: 048

REACTIONS (4)
  - Dyspnoea [None]
  - Asphyxia [None]
  - Insomnia [None]
  - Oxygen saturation decreased [None]

NARRATIVE: CASE EVENT DATE: 20210303
